FAERS Safety Report 24737161 (Version 1)
Quarter: 2024Q4

REPORT INFORMATION
  Report Type: Spontaneous
  Country: DE (occurrence: DE)
  Receive Date: 20241216
  Receipt Date: 20241216
  Transmission Date: 20250115
  Serious: Yes (Hospitalization, Other)
  Sender: NOVARTIS
  Company Number: DE-002147023-NVSC2024DE171397

PATIENT
  Age: 61 Year
  Sex: Male

DRUGS (1)
  1. MAYZENT [Suspect]
     Active Substance: SIPONIMOD
     Indication: Multiple sclerosis
     Dosage: 0.25 MG, QD (1-0-0)
     Route: 048

REACTIONS (3)
  - Dysphagia [Recovered/Resolved]
  - Pharyngeal cancer [Unknown]
  - General physical health deterioration [Recovered/Resolved]
